FAERS Safety Report 16042581 (Version 2)
Quarter: 2019Q1

REPORT INFORMATION
  Report Type: Spontaneous
  Country: US (occurrence: US)
  Receive Date: 20190306
  Receipt Date: 20190308
  Transmission Date: 20190418
  Serious: Yes (Other)
  Sender: FDA-Public Use
  Company Number: PHHY2019US051272

PATIENT
  Age: 8 Year
  Sex: Female

DRUGS (2)
  1. IMATINIB. [Suspect]
     Active Substance: IMATINIB MESYLATE
     Indication: NEUROFIBROMATOSIS
     Route: 065
  2. IMATINIB. [Suspect]
     Active Substance: IMATINIB MESYLATE
     Indication: NEUROFIBROMA

REACTIONS (4)
  - Neurofibroma [Unknown]
  - Drug ineffective [Unknown]
  - Neurofibromatosis [Unknown]
  - Product use in unapproved indication [Unknown]
